FAERS Safety Report 4309821-7 (Version None)
Quarter: 2004Q1

REPORT INFORMATION
  Report Type: 
  Country: None (occurrence: None)
  Receive Date: 20040301
  Receipt Date: 20030424
  Transmission Date: 20041129
  Serious: Yes (Hospitalization)
  Sender: FDA-Public Use
  Company Number: 1414

PATIENT
  Age: 77 Year
  Sex: Female
  Weight: 62.5964 kg

DRUGS (4)
  1. TARGRETIN [Suspect]
     Indication: MYCOSIS FUNGOIDES
     Dosage: 75 MG QD PO
     Route: 048
     Dates: start: 20030301
  2. TARGRETIN [Suspect]
     Dosage: 75 MG QOD PO
     Route: 048
  3. ATENOLOL [Concomitant]
  4. ENALAPRIL MALEATE [Concomitant]

REACTIONS (1)
  - CHEST PAIN [None]
